FAERS Safety Report 13407668 (Version 1)
Quarter: 2017Q2

REPORT INFORMATION
  Report Type: Other
  Country: CA (occurrence: CA)
  Receive Date: 20170406
  Receipt Date: 20170406
  Transmission Date: 20170830
  Serious: Yes (Other)
  Sender: FDA-Public Use
  Company Number: CA-HLSUS-2017-CA-000315

PATIENT
  Age: 45 Year
  Sex: Male

DRUGS (5)
  1. LEVOMEPROMAZINE [Suspect]
     Active Substance: LEVOMEPROMAZINE
     Indication: PSYCHOTIC DISORDER
  2. CLOZAPINE. [Suspect]
     Active Substance: CLOZAPINE
     Dosage: 150 MG ONCE DAILY
  3. RISPERIDONE. [Suspect]
     Active Substance: RISPERIDONE
     Indication: PSYCHOTIC DISORDER
  4. QUETIAPINE. [Suspect]
     Active Substance: QUETIAPINE
     Dosage: 700 MG 1 EVERY DAY
  5. OLANZAPINE. [Suspect]
     Active Substance: OLANZAPINE
     Indication: PSYCHOTIC DISORDER

REACTIONS (9)
  - Akathisia [Unknown]
  - Fall [Unknown]
  - Resting tremor [Unknown]
  - Oculogyric crisis [Unknown]
  - Parkinsonism [Unknown]
  - Seizure [Unknown]
  - Cognitive disorder [Unknown]
  - Myoclonus [Unknown]
  - Cogwheel rigidity [Unknown]
